FAERS Safety Report 7102880-8 (Version None)
Quarter: 2010Q4

REPORT INFORMATION
  Report Type: 
  Country: None (occurrence: None)
  Receive Date: 20101115
  Receipt Date: 20101102
  Transmission Date: 20110411
  Serious: Yes (Hospitalization, Other)
  Sender: FDA-Public Use
  Company Number: US-ELI_LILLY_AND_COMPANY-US201011001188

PATIENT
  Age: 82 Year
  Sex: Female
  Weight: 54.422 kg

DRUGS (11)
  1. FORTEO [Suspect]
     Indication: OSTEOPOROSIS
     Dosage: 20 UG, DAILY (1/D)
     Route: 065
  2. LASIX [Concomitant]
  3. POTASSIUM CHLORIDE [Concomitant]
  4. FOLBEE [Concomitant]
  5. MIRAPEX [Concomitant]
  6. GABAPENTIN [Concomitant]
     Indication: NEUROPATHY PERIPHERAL
  7. FLEXERIL [Concomitant]
  8. CALCIUM [Concomitant]
  9. VITAMIN D [Concomitant]
  10. RESTASIS [Concomitant]
  11. LUMIGAN [Concomitant]

REACTIONS (12)
  - BLOOD GLUCOSE INCREASED [None]
  - DIABETES MELLITUS [None]
  - GAIT DISTURBANCE [None]
  - HYPOTONIA [None]
  - LETHARGY [None]
  - MOBILITY DECREASED [None]
  - PAIN [None]
  - SPINAL FRACTURE [None]
  - TEMPORAL ARTERITIS [None]
  - UNRESPONSIVE TO STIMULI [None]
  - URINARY TRACT INFECTION [None]
  - WHEELCHAIR USER [None]
